FAERS Safety Report 7467084-8 (Version None)
Quarter: 2011Q2

REPORT INFORMATION
  Report Type: 
  Country: None (occurrence: None)
  Receive Date: 20110509
  Receipt Date: 20110214
  Transmission Date: 20111010
  Serious: No
  Sender: FDA-Public Use
  Company Number: US-SANOFI-AVENTIS-2011SA011501

PATIENT
  Age: 87 Year
  Sex: Male
  Weight: 110 kg

DRUGS (4)
  1. APIDRA [Suspect]
     Dosage: SLIDING SCALE DOSE
     Route: 058
     Dates: start: 20050101
  2. OPTICLICK [Suspect]
     Dates: start: 20070101
  3. LANTUS [Suspect]
     Dosage: DOSE:35 UNIT(S)
     Route: 058
     Dates: start: 20050101
  4. OPTICLICK [Suspect]

REACTIONS (2)
  - VISUAL IMPAIRMENT [None]
  - EXPIRED DRUG ADMINISTERED [None]
